FAERS Safety Report 9920012 (Version 1)
Quarter: 2014Q1

REPORT INFORMATION
  Report Type: Spontaneous
  Country: CA (occurrence: CA)
  Receive Date: 20140224
  Receipt Date: 20140224
  Transmission Date: 20141002
  Serious: Yes (Hospitalization)
  Sender: FDA-Public Use
  Company Number: CA-NAPPMUNDI-CAN-2014-0004701

PATIENT
  Age: 64 Year
  Sex: Female
  Weight: 69 kg

DRUGS (34)
  1. HYDROMORPHONE HCL [Suspect]
     Indication: PRODUCT USED FOR UNKNOWN INDICATION
     Dosage: UNK, UNK
  2. SENOKOT [Suspect]
     Indication: PRODUCT USED FOR UNKNOWN INDICATION
     Dosage: UNK, UNK
  3. SENNOSIDES [Suspect]
     Indication: PRODUCT USED FOR UNKNOWN INDICATION
  4. ACIDOPHILUS [Suspect]
     Indication: PRODUCT USED FOR UNKNOWN INDICATION
     Dosage: UNK, UNK
  5. ALENDRONATE [Suspect]
     Indication: PRODUCT USED FOR UNKNOWN INDICATION
  6. APO-K [Suspect]
     Indication: PRODUCT USED FOR UNKNOWN INDICATION
     Dosage: UNK, UNK
  7. APO-SULFATRIM [Suspect]
     Indication: PRODUCT USED FOR UNKNOWN INDICATION
     Dosage: UNK, UNK
  8. ATIVAN [Suspect]
     Indication: PRODUCT USED FOR UNKNOWN INDICATION
     Dosage: UNK, UNK
  9. VITAMIN B COMPLEX [Suspect]
     Indication: PRODUCT USED FOR UNKNOWN INDICATION
  10. BACLOFEN [Suspect]
     Indication: PRODUCT USED FOR UNKNOWN INDICATION
  11. CALCIUM [Suspect]
     Indication: PRODUCT USED FOR UNKNOWN INDICATION
  12. CELLCEPT /01275102/ [Suspect]
     Indication: PRODUCT USED FOR UNKNOWN INDICATION
     Dosage: UNK, UNK
  13. CYMBALTA [Suspect]
     Indication: PRODUCT USED FOR UNKNOWN INDICATION
     Dosage: UNK, UNK
     Route: 048
  14. DOCUSATE SODIUM [Suspect]
     Indication: PRODUCT USED FOR UNKNOWN INDICATION
     Dosage: UNK, UNK
  15. ELECTROLYTES NOS [Suspect]
     Indication: PRODUCT USED FOR UNKNOWN INDICATION
  16. FISH OIL [Suspect]
     Indication: PRODUCT USED FOR UNKNOWN INDICATION
     Dosage: UNK, UNK
  17. FUROSEMIDE [Suspect]
     Indication: PRODUCT USED FOR UNKNOWN INDICATION
  18. IMMUNOGLOBULIN /00025201/ [Suspect]
     Indication: PRODUCT USED FOR UNKNOWN INDICATION
     Route: 042
  19. IMODIUM [Suspect]
     Indication: PRODUCT USED FOR UNKNOWN INDICATION
     Dosage: UNK, UNK
  20. LORATADINE [Suspect]
     Indication: PRODUCT USED FOR UNKNOWN INDICATION
     Dosage: 10 MG, UNK
  21. LYRICA [Suspect]
     Indication: PRODUCT USED FOR UNKNOWN INDICATION
     Dosage: UNK, UNK
  22. MELATONIN [Suspect]
     Indication: PRODUCT USED FOR UNKNOWN INDICATION
  23. MULTIVITAMIN /00831701/ [Suspect]
     Indication: PRODUCT USED FOR UNKNOWN INDICATION
     Dosage: UNK, UNK
  24. NASONEX [Suspect]
     Indication: PRODUCT USED FOR UNKNOWN INDICATION
     Dosage: UNK, UNK
  25. NORTRIPTYLINE [Suspect]
     Indication: PRODUCT USED FOR UNKNOWN INDICATION
     Dosage: UNK, UNK
  26. NOVO-HYDRAZIDE [Suspect]
     Indication: PRODUCT USED FOR UNKNOWN INDICATION
     Dosage: UNK, UNK
  27. PREDNISONE [Suspect]
     Indication: PRODUCT USED FOR UNKNOWN INDICATION
     Dosage: UNK, UNK
  28. TIZANIDINE [Suspect]
     Indication: PRODUCT USED FOR UNKNOWN INDICATION
     Dosage: UNK, UNK
  29. VITAMIN B12 /00056201/ [Suspect]
     Indication: PRODUCT USED FOR UNKNOWN INDICATION
     Dosage: UNK, UNK
  30. VITAMIN C /00008001/ [Suspect]
     Indication: PRODUCT USED FOR UNKNOWN INDICATION
  31. VITAMIN D /00318501/ [Suspect]
     Indication: PRODUCT USED FOR UNKNOWN INDICATION
     Dosage: UNK, UNK
  32. WARFARIN [Suspect]
     Indication: PRODUCT USED FOR UNKNOWN INDICATION
     Dosage: UNK, UNK
  33. ZANTAC [Suspect]
     Indication: PRODUCT USED FOR UNKNOWN INDICATION
     Dosage: UNK, UNK
  34. ZOPICLONE [Suspect]
     Indication: PRODUCT USED FOR UNKNOWN INDICATION
     Dosage: UNK, UNK

REACTIONS (4)
  - Pneumonia aspiration [Recovered/Resolved]
  - Gastrooesophageal reflux disease [Recovered/Resolved]
  - Coma [Recovered/Resolved]
  - Somnolence [Recovered/Resolved]
